FAERS Safety Report 20417742 (Version 2)
Quarter: 2025Q4

REPORT INFORMATION
  Report Type: Report from Study
  Country: US (occurrence: US)
  Receive Date: 20220202
  Receipt Date: 20251221
  Transmission Date: 20260118
  Serious: Yes (Hospitalization, Other)
  Sender: TAKEDA
  Company Number: US-TAKEDA-US201919926

PATIENT
  Age: 50 Year
  Sex: Female

DRUGS (6)
  1. ECALLANTIDE [Suspect]
     Active Substance: ECALLANTIDE
     Indication: Immune system disorder
     Dosage: 30 MILLIGRAM
  2. ECALLANTIDE [Suspect]
     Active Substance: ECALLANTIDE
     Dosage: 30 MILLIGRAM
  3. CINRYZE [Suspect]
     Active Substance: HUMAN C1-ESTERASE INHIBITOR
     Indication: Immune system disorder
     Dosage: 1500 INTERNATIONAL UNIT, EVERY 3 DAYS
  4. CINRYZE [Suspect]
     Active Substance: HUMAN C1-ESTERASE INHIBITOR
  5. CINRYZE [Suspect]
     Active Substance: HUMAN C1-ESTERASE INHIBITOR
  6. RUCONEST [Concomitant]
     Active Substance: CONESTAT ALFA
     Indication: Hereditary angioedema
     Dosage: UNK

REACTIONS (6)
  - Myocardial infarction [Unknown]
  - Pericardial effusion [Unknown]
  - COVID-19 [Recovered/Resolved]
  - Hereditary angioedema [Recovered/Resolved]
  - Procedural complication [Unknown]
  - Device power source issue [Unknown]

NARRATIVE: CASE EVENT DATE: 20190523
